FAERS Safety Report 4934779-7 (Version None)
Quarter: 2006Q1

REPORT INFORMATION
  Report Type: 
  Country: None (occurrence: None)
  Receive Date: 20060307
  Receipt Date: 20051207
  Transmission Date: 20060701
  Serious: Yes (Hospitalization)
  Sender: FDA-Public Use
  Company Number: US-MERCK-0512USA01355

PATIENT
  Age: 62 Year
  Sex: Male

DRUGS (8)
  1. VIOXX [Suspect]
     Route: 048
  2. GLUCOPHAGE [Concomitant]
     Route: 048
  3. LIPITOR [Concomitant]
     Route: 048
  4. LANOXIN [Concomitant]
     Route: 065
  5. METOPROLOL [Concomitant]
     Route: 048
  6. ASPIRIN [Concomitant]
     Route: 048
  7. VITAMINS (UNSPECIFIED) [Concomitant]
     Route: 065
  8. FLEXERIL [Concomitant]
     Route: 048

REACTIONS (4)
  - ACUTE MYOCARDIAL INFARCTION [None]
  - CORONARY ARTERY DISEASE [None]
  - DIVERTICULUM [None]
  - VENTRICULAR DYSFUNCTION [None]
